FAERS Safety Report 4481748-X (Version None)
Quarter: 2004Q4

REPORT INFORMATION
  Report Type: 
  Country: None (occurrence: None)
  Receive Date: 20041021
  Receipt Date: 20041013
  Transmission Date: 20050328
  Serious: Yes (Death, Life-Threatening)
  Sender: FDA-Public Use
  Company Number: US-MERCK-0410USA01964

PATIENT
  Age: 73 Year
  Sex: Male
  Weight: 86 kg

DRUGS (9)
  1. VIOXX [Suspect]
     Indication: PAIN IN EXTREMITY
     Route: 048
     Dates: start: 20040601
  2. ALTACE [Concomitant]
     Route: 065
  3. ATENOLOL [Concomitant]
     Route: 065
  4. HYDRODIURIL [Concomitant]
     Route: 048
  5. COUMADIN [Concomitant]
     Route: 065
  6. LIPITOR [Concomitant]
     Route: 065
  7. PLAVIX [Concomitant]
     Route: 065
  8. PROSCAR [Concomitant]
     Route: 065
  9. ASPIRIN [Concomitant]
     Route: 065

REACTIONS (1)
  - CEREBROVASCULAR ACCIDENT [None]
